FAERS Safety Report 5077446-4 (Version None)
Quarter: 2006Q3

REPORT INFORMATION
  Report Type: 
  Country: None (occurrence: None)
  Receive Date: 20060810
  Receipt Date: 20060228
  Transmission Date: 20061208
  Serious: No
  Sender: FDA-Public Use
  Company Number: US-GLAXOSMITHKLINE-A0595534A

PATIENT
  Age: 20 Year
  Sex: Male

DRUGS (4)
  1. PAXIL [Suspect]
     Indication: OBSESSIVE-COMPULSIVE DISORDER
     Dosage: 12.5MG TWICE PER DAY
     Route: 048
  2. PROTONIX [Concomitant]
  3. BENADRYL [Concomitant]
  4. MELATONIN [Concomitant]

REACTIONS (2)
  - DYSKINESIA [None]
  - TREMOR [None]
